FAERS Safety Report 16963362 (Version 1)
Quarter: 2019Q4

REPORT INFORMATION
  Report Type: Spontaneous
  Country: US (occurrence: US)
  Receive Date: 20191025
  Receipt Date: 20191025
  Transmission Date: 20200122
  Serious: Yes (Hospitalization)
  Sender: FDA-Public Use
  Company Number: US-FRESENIUS KABI-FK201911793

PATIENT
  Sex: Female

DRUGS (3)
  1. FLUOROURACIL (MANUFACTURER UNKNOWN) [Suspect]
     Active Substance: FLUOROURACIL
     Indication: PANCREATIC CARCINOMA METASTATIC
     Dosage: LAST DOSE ON 02/OCT/2019 OF CYCLE 2 DAY 1
     Route: 065
  2. IRINOTECAN [Suspect]
     Active Substance: IRINOTECAN
     Indication: PANCREATIC CARCINOMA METASTATIC
     Dosage: LIPOSOMAL IRINOTECAN (LAST DOSE ON 02/OCT/2019 OF CYCLE 2 DAY 1)
     Route: 065
  3. PARICALCITOL. [Suspect]
     Active Substance: PARICALCITOL
     Indication: PANCREATIC CARCINOMA METASTATIC
     Dosage: LAST DOSE ON 09/OCT/2019 OF CYCLE 2 DAY 8
     Route: 065

REACTIONS (4)
  - Constipation [Not Recovered/Not Resolved]
  - Fatigue [Not Recovered/Not Resolved]
  - Back pain [Not Recovered/Not Resolved]
  - Condition aggravated [Not Recovered/Not Resolved]
